FAERS Safety Report 6404579-X (Version None)
Quarter: 2009Q4

REPORT INFORMATION
  Report Type: 
  Country: None (occurrence: None)
  Receive Date: 20091016
  Receipt Date: 20091013
  Transmission Date: 20100525
  Serious: Yes (Death, Life-Threatening, Hospitalization)
  Sender: FDA-Public Use
  Company Number: PHHO2009US12498

PATIENT
  Age: 63 Year
  Sex: Male
  Weight: 64.8 kg

DRUGS (16)
  1. RAD 666 RAD+TAB [Suspect]
     Indication: NEUROENDOCRINE CARCINOMA
     Dosage: 10 MG, QD
     Route: 048
     Dates: start: 20090824
  2. SORAFENIB COMP-SORA+TAB [Suspect]
     Indication: NEUROENDOCRINE CARCINOMA
     Dosage: 200 MG, BID
     Route: 048
     Dates: start: 20090824
  3. AMBIEN [Concomitant]
  4. ATIVAN [Concomitant]
  5. BISOPROLOL [Concomitant]
  6. CLARITIN [Concomitant]
  7. DARBEPOETIN ALFA [Concomitant]
  8. DILAUDID [Concomitant]
  9. FENTANYL [Concomitant]
  10. NEUTRA-PHOS [Concomitant]
  11. ONDANSETRON [Concomitant]
  12. POTASSIUM CHLORIDE [Concomitant]
  13. QUINAPRIL [Concomitant]
  14. REMERON [Concomitant]
  15. SENNA [Concomitant]
  16. HYDROCHLOROTHIAZIDE [Concomitant]

REACTIONS (4)
  - ABDOMINAL CAVITY DRAINAGE [None]
  - GASTRIC PERFORATION [None]
  - PAIN [None]
  - PELVIC FLUID COLLECTION [None]
